FAERS Safety Report 23465031 (Version 1)
Quarter: 2024Q1

REPORT INFORMATION
  Report Type: Spontaneous
  Country: US (occurrence: US)
  Receive Date: 20240201
  Receipt Date: 20240201
  Transmission Date: 20240409
  Serious: No
  Sender: FDA-Public Use
  Company Number: US-PERRIGO-23US011925

PATIENT
  Age: 73 Year
  Sex: Female

DRUGS (10)
  1. OMEPRAZOLE [Suspect]
     Active Substance: OMEPRAZOLE
     Indication: Gastrooesophageal reflux disease
     Dosage: 20 MG, BID 2 SEPARATED DOSES
     Route: 048
     Dates: start: 20230927, end: 20231010
  2. LORAZEPAM [Concomitant]
     Active Substance: LORAZEPAM
     Indication: Insomnia
     Dosage: 2 MG, QHS
     Route: 065
     Dates: start: 1998
  3. ATORVASTATIN [Concomitant]
     Active Substance: ATORVASTATIN
     Indication: Prophylaxis
     Dosage: 40 MG, QD
     Route: 065
     Dates: start: 2021
  4. ZOVIRAX [Concomitant]
     Active Substance: ACYCLOVIR
     Indication: Herpes virus infection
     Dosage: 1 TABLET, BID
     Route: 065
  5. TRAZODONE [Concomitant]
     Active Substance: TRAZODONE HYDROCHLORIDE
     Indication: Insomnia
     Dosage: 200 MG, QHS
     Route: 065
  6. ELIQUIS [Concomitant]
     Active Substance: APIXABAN
     Indication: Hypertension
     Dosage: 5 MG, BID 2 SEPARATED DOSES
     Route: 065
     Dates: start: 202302
  7. ELIQUIS [Concomitant]
     Active Substance: APIXABAN
     Indication: Heart rate increased
  8. LOSARTAN [Concomitant]
     Active Substance: LOSARTAN
     Indication: Hypertension
     Dosage: 25 MG, QD
     Route: 065
  9. DEPAKOTE [Concomitant]
     Active Substance: DIVALPROEX SODIUM
     Indication: Bipolar II disorder
     Dosage: 750 MG, QHS
     Route: 065
     Dates: start: 2023
  10. DEPAKOTE [Concomitant]
     Active Substance: DIVALPROEX SODIUM
     Dosage: 250 MG, QAM
     Route: 065
     Dates: start: 2023

REACTIONS (2)
  - Drug ineffective [Unknown]
  - Inappropriate schedule of product administration [Unknown]

NARRATIVE: CASE EVENT DATE: 20230927
